FAERS Safety Report 10995781 (Version 1)
Quarter: 2015Q2

REPORT INFORMATION
  Report Type: Report from Study
  Country: US (occurrence: US)
  Receive Date: 20150407
  Receipt Date: 20150407
  Transmission Date: 20150821
  Serious: Yes (Death)
  Sender: FDA-Public Use
  Company Number: US-ACTELION-A-US2015-115472

PATIENT
  Age: 53 Year
  Sex: Female

DRUGS (6)
  1. COUMADIN [Concomitant]
     Active Substance: WARFARIN SODIUM
     Dosage: 5 MG, UNK
  2. LEVEMIR [Concomitant]
     Active Substance: INSULIN DETEMIR
  3. MACITENTAN [Suspect]
     Active Substance: MACITENTAN
     Indication: PULMONARY ARTERIAL HYPERTENSION
     Dosage: 10 MG, UNK
     Route: 048
     Dates: start: 20150122
  4. FLONASE [Concomitant]
     Active Substance: FLUTICASONE PROPIONATE
  5. LIDODERM [Concomitant]
     Active Substance: LIDOCAINE
  6. ATENOLOL. [Concomitant]
     Active Substance: ATENOLOL
     Dosage: 25 MG, UNK

REACTIONS (1)
  - Death [Fatal]

NARRATIVE: CASE EVENT DATE: 20150325
